FAERS Safety Report 5033690-3 (Version None)
Quarter: 2006Q2

REPORT INFORMATION
  Report Type: 
  Country: None (occurrence: None)
  Receive Date: 20060518
  Receipt Date: 20051205
  Transmission Date: 20061013
  Serious: Yes (Other)
  Sender: FDA-Public Use
  Company Number: 2005076794

PATIENT
  Sex: Female
  Weight: 56.6996 kg

DRUGS (2)
  1. DEPO-PROVERA [Suspect]
     Indication: CONTRACEPTION
     Dosage: (1ST INJECTION)
     Dates: start: 20050310, end: 20050310
  2. PREVACID [Concomitant]

REACTIONS (4)
  - NAUSEA [None]
  - UNINTENDED PREGNANCY [None]
  - VOMITING [None]
  - WEIGHT DECREASED [None]
